FAERS Safety Report 14991243 (Version 1)
Quarter: 2018Q2

REPORT INFORMATION
  Report Type: Spontaneous
  Country: US (occurrence: US)
  Receive Date: 20180608
  Receipt Date: 20180608
  Transmission Date: 20180711
  Serious: Yes (Hospitalization, Other)
  Sender: FDA-Public Use
  Company Number: US-SA-2018SA150465

PATIENT
  Age: 51 Year
  Sex: Female

DRUGS (11)
  1. TECFIDERA [Concomitant]
     Active Substance: DIMETHYL FUMARATE
  2. BUSPIRONE HCL [Concomitant]
     Active Substance: BUSPIRONE HYDROCHLORIDE
     Dosage: 10 MG
  3. LAMICTAL [Concomitant]
     Active Substance: LAMOTRIGINE
     Dosage: 200 MG
  4. SIMVASTATIN. [Concomitant]
     Active Substance: SIMVASTATIN
     Dosage: 20 MG
  5. GABAPENTIN. [Concomitant]
     Active Substance: GABAPENTIN
     Dosage: 600 MG
  6. CELEXA [CELECOXIB] [Concomitant]
     Dosage: 20 MG
  7. AUBAGIO [Suspect]
     Active Substance: TERIFLUNOMIDE
     Indication: MULTIPLE SCLEROSIS
     Dosage: 14 MG, QD
     Route: 048
  8. CYCLOBENZAPRINE HCL [Concomitant]
     Active Substance: CYCLOBENZAPRINE HYDROCHLORIDE
     Dosage: 10 MG
  9. BENADRYL ALLERGY + COLD [Concomitant]
     Dosage: 25 MG
  10. LYRICA [Concomitant]
     Active Substance: PREGABALIN
     Dosage: 50 MG
  11. POTASSIUM CHLORIDE. [Concomitant]
     Active Substance: POTASSIUM CHLORIDE

REACTIONS (11)
  - Hernia repair [Unknown]
  - Depression [Unknown]
  - Fall [Unknown]
  - Decreased interest [Unknown]
  - Clumsiness [Unknown]
  - Clostridium difficile infection [Unknown]
  - Palpitations [Unknown]
  - Contusion [Unknown]
  - Multiple sclerosis relapse [Unknown]
  - Dehydration [Unknown]
  - Fatigue [Unknown]

NARRATIVE: CASE EVENT DATE: 201801
